FAERS Safety Report 4442075-X (Version None)
Quarter: 2004Q3

REPORT INFORMATION
  Report Type: 
  Country: None (occurrence: None)
  Receive Date: 20040907
  Receipt Date: 20040830
  Transmission Date: 20050211
  Serious: Yes (Other)
  Sender: FDA-Public Use
  Company Number: PHBS2004ES11536

PATIENT
  Age: 66 Year
  Sex: Female
  Weight: 64 kg

DRUGS (3)
  1. VALSARTAN [Suspect]
     Indication: HYPERTENSION
     Dosage: 60 MG/DAY
  2. DIURETICS [Concomitant]
  3. ANAESTHETICS [Concomitant]

REACTIONS (1)
  - HYPOTENSION [None]
